FAERS Safety Report 25388541 (Version 2)
Quarter: 2025Q3

REPORT INFORMATION
  Report Type: Spontaneous
  Country: US (occurrence: US)
  Receive Date: 20250603
  Receipt Date: 20250805
  Transmission Date: 20251020
  Serious: Yes (Disabling, Other)
  Sender: NOVO NORDISK
  Company Number: US-NOVOPROD-1444527

PATIENT
  Sex: Female

DRUGS (2)
  1. INSULIN NOS [Suspect]
     Active Substance: INSULIN NOS
     Indication: Type 2 diabetes mellitus
  2. NOVOLOG [Suspect]
     Active Substance: INSULIN ASPART
     Indication: Type 2 diabetes mellitus
     Dates: start: 1980

REACTIONS (4)
  - Rehabilitation therapy [Not Recovered/Not Resolved]
  - Gait inability [Unknown]
  - Loss of personal independence in daily activities [Unknown]
  - Fall [Unknown]
